FAERS Safety Report 8140889-6 (Version None)
Quarter: 2012Q1

REPORT INFORMATION
  Report Type: 
  Country: None (occurrence: None)
  Receive Date: 20120216
  Receipt Date: 20120207
  Transmission Date: 20120608
  Serious: Yes (Death, Hospitalization)
  Sender: FDA-Public Use
  Company Number: US-CELGENEUS-163-21880-11121629

PATIENT
  Sex: Male
  Weight: 72.1 kg

DRUGS (12)
  1. LEVSIN [Concomitant]
     Route: 065
     Dates: start: 20110701
  2. REVLIMID [Suspect]
     Dosage: 5 MILLIGRAM
     Route: 048
     Dates: start: 20100301
  3. SCOPOLAMINE [Concomitant]
     Route: 062
     Dates: start: 20110701
  4. DILAUDID [Concomitant]
     Indication: BREAKTHROUGH PAIN
     Dosage: 0.5
     Route: 041
     Dates: start: 20110701
  5. LASIX [Concomitant]
     Dosage: 40-80
     Route: 065
     Dates: start: 20110720
  6. MORPHINE [Concomitant]
     Indication: PAIN
     Dosage: 10 MILLIGRAM
     Route: 041
     Dates: start: 20110722
  7. OXYCONTIN [Concomitant]
     Indication: PAIN
     Route: 065
     Dates: start: 20110701
  8. SODIUM CHLORIDE [Concomitant]
     Dosage: 1L
     Route: 041
  9. MORPHINE [Concomitant]
     Dosage: 6-10MG
     Route: 041
     Dates: start: 20110701
  10. DILAUDID [Concomitant]
     Dosage: 1 MILLIGRAM
     Route: 041
  11. REVLIMID [Suspect]
     Dosage: 5 MILLIGRAM
     Route: 048
     Dates: start: 20081201, end: 20091001
  12. ZOFRAN [Concomitant]
     Dosage: 4 MILLIGRAM
     Route: 041

REACTIONS (1)
  - NEUROENDOCRINE CARCINOMA [None]
